FAERS Safety Report 6553665-2 (Version None)
Quarter: 2010Q1

REPORT INFORMATION
  Report Type: 
  Country: None (occurrence: None)
  Receive Date: 20100127
  Receipt Date: 20100115
  Transmission Date: 20100710
  Serious: Yes (Other)
  Sender: FDA-Public Use
  Company Number: PHHY2010ES02689

PATIENT
  Age: 75 Year
  Sex: Female

DRUGS (4)
  1. ACLASTA [Suspect]
     Indication: OSTEOPOROSIS
     Dosage: ONE INJECTION (5MG)
     Route: 042
     Dates: start: 20090506
  2. ALENDRONATE SODIUM [Suspect]
     Dosage: UNK
     Dates: start: 20050101, end: 20090505
  3. PREDNISONE [Concomitant]
     Route: 048
  4. IMUREL [Concomitant]
     Route: 048

REACTIONS (1)
  - TIBIA FRACTURE [None]
